FAERS Safety Report 11303225 (Version 1)
Quarter: 2015Q3

REPORT INFORMATION
  Report Type: Spontaneous
  Country: CA (occurrence: CA)
  Receive Date: 20150723
  Receipt Date: 20150723
  Transmission Date: 20151125
  Serious: Yes (Other)
  Sender: FDA-Public Use
  Company Number: PHHY2015CA087800

PATIENT
  Age: 40 Year
  Sex: Male

DRUGS (3)
  1. SUNITINIB [Suspect]
     Active Substance: SUNITINIB
     Indication: GASTROINTESTINAL STROMAL TUMOUR
     Route: 065
  2. REGORAFENIB [Suspect]
     Active Substance: REGORAFENIB
     Indication: GASTROINTESTINAL STROMAL TUMOUR
     Dosage: UNK
     Route: 065
     Dates: start: 201301
  3. GLIVEC [Suspect]
     Active Substance: IMATINIB MESYLATE
     Indication: GASTROINTESTINAL STROMAL TUMOUR
     Route: 065

REACTIONS (29)
  - Neoplasm [Unknown]
  - Tumour ulceration [Unknown]
  - Impaired healing [Unknown]
  - Blood calcium increased [Unknown]
  - Hyperkeratosis [Unknown]
  - Wound [Not Recovered/Not Resolved]
  - Dyspepsia [Unknown]
  - Asthenia [Unknown]
  - Tumour compression [Unknown]
  - Gastrointestinal stromal tumour [Unknown]
  - Hepatomegaly [Unknown]
  - Back pain [Unknown]
  - Second primary malignancy [Unknown]
  - Poor peripheral circulation [Unknown]
  - Tumour pain [Unknown]
  - Arthralgia [Unknown]
  - Postoperative wound infection [Recovered/Resolved]
  - White blood cell count increased [Unknown]
  - Clear cell sarcoma of soft tissue [Unknown]
  - Local swelling [Unknown]
  - Weight decreased [Unknown]
  - Fatigue [Unknown]
  - Insomnia [Unknown]
  - Nausea [Unknown]
  - Malignant neoplasm progression [Unknown]
  - Bone loss [Unknown]
  - Peripheral swelling [Not Recovered/Not Resolved]
  - Pain [Not Recovered/Not Resolved]
  - Drug ineffective [Unknown]

NARRATIVE: CASE EVENT DATE: 2012
